FAERS Safety Report 9490890 (Version 1)
Quarter: 2013Q3

REPORT INFORMATION
  Report Type: Spontaneous
  Country: US (occurrence: US)
  Receive Date: 20130830
  Receipt Date: 20130830
  Transmission Date: 20140515
  Serious: No
  Sender: FDA-Public Use
  Company Number: US-PFIZER INC-2013246170

PATIENT
  Age: 75 Year
  Sex: Female

DRUGS (6)
  1. TETRACYCLINE HCL [Suspect]
     Dosage: UNK
  2. AMOXICILLIN [Suspect]
     Dosage: UNK
  3. DOXYCYCLINE HYCLATE [Suspect]
     Dosage: UNK
  4. SEREVENT [Suspect]
     Dosage: UNK
  5. ELAVIL [Suspect]
     Dosage: UNK
  6. E-MYCIN [Suspect]
     Dosage: UNK

REACTIONS (1)
  - Drug hypersensitivity [Unknown]
